FAERS Safety Report 9300033 (Version 1)
Quarter: 2012Q4

REPORT INFORMATION
  Report Type: Spontaneous
  Country: IT (occurrence: None)
  Receive Date: 20121106
  Receipt Date: 20121106
  Transmission Date: 20130627
  Serious: Yes (Death, Life-Threatening, Hospitalization)
  Sender: FDA-Public Use
  Company Number: MC201200326

PATIENT
  Age: 75 Year
  Sex: Male
  Weight: 72 kg

DRUGS (11)
  1. CANGRELOR [Suspect]
     Indication: PERCUTANEOUS CORONARY INTERVENTION
     Dosage: 4 loading dose capsules, Oral
     Dates: start: 20120417, end: 20120417
  2. CANGRELOR [Suspect]
     Indication: PERCUTANEOUS CORONARY INTERVENTION
     Route: 040
     Dates: start: 20120417, end: 20120417
  3. CANGRELOR [Suspect]
     Indication: PERCUTANEOUS CORONARY INTERVENTION
     Route: 042
     Dates: start: 20120417, end: 20120417
  4. ANGIOMAX, ANGIOX (BIVALIRUDIN) INJECTION [Suspect]
     Indication: PERCUTANEOUS CORONARY INTERVENTION
     Dosage: 11 ml, bolus pre/during procedure, Intravenous
     Dates: start: 20120417, end: 20120417
  5. ANGIOMAX, ANGIOX (BIVALIRUDIN) INJECTION [Suspect]
     Indication: PERCUTANEOUS CORONARY INTERVENTION
     Dosage: 25 ml/hr pre/during procedure, Intravenous
     Dates: start: 20120417, end: 20120417
  6. ABCIXIMAB [Suspect]
     Indication: CORONARY THROMBOSIS
     Dosage: 9 ml, periprocedurally, Intravenous
     Dates: start: 20120417, end: 20120417
  7. ABCIXIMAB [Suspect]
     Indication: CORONARY THROMBOSIS
     Dosage: 15 ml, hr, Intravenous
     Dates: start: 20120417, end: 20120417
  8. ASPIRIN (ACETYLSALICYLIC ACID) [Concomitant]
  9. UFH (HEPARIN) [Concomitant]
  10. ADENOSINE (ADENOSINE) [Concomitant]
  11. None [Suspect]

REACTIONS (7)
  - Cardio-respiratory arrest [None]
  - Pneumonia pseudomonas aeruginosa [None]
  - Bradycardia [None]
  - Hypotension [None]
  - Acute respiratory distress syndrome [None]
  - Renal failure [None]
  - Respiratory failure [None]
